FAERS Safety Report 6385238-9 (Version None)
Quarter: 2009Q4

REPORT INFORMATION
  Report Type: 
  Country: None (occurrence: None)
  Receive Date: 20091002
  Receipt Date: 20080819
  Transmission Date: 20100525
  Serious: No
  Sender: FDA-Public Use
  Company Number: US-ASTRAZENECA-2008UW13573

PATIENT
  Age: 62 Year
  Sex: Female
  Weight: 65.3 kg

DRUGS (5)
  1. ARIMIDEX [Suspect]
     Indication: BREAST CANCER FEMALE
     Route: 048
     Dates: start: 20080515
  2. ARMOUR THYROID [Concomitant]
  3. CALCIUM CITRATE WITH VITAMIN D [Concomitant]
     Dosage: 500 - 1000 UG DAILY
     Route: 048
  4. VITAMIN D [Concomitant]
  5. FOSAMAX [Concomitant]
     Route: 048

REACTIONS (2)
  - HOT FLUSH [None]
  - HYPOSMIA [None]
